FAERS Safety Report 4646136-1 (Version None)
Quarter: 2005Q2

REPORT INFORMATION
  Report Type: 
  Country: None (occurrence: None)
  Receive Date: 20050427
  Receipt Date: 20040607
  Transmission Date: 20051028
  Serious: No
  Sender: FDA-Public Use
  Company Number: US-GLAXOSMITHKLINE-A0513624A

PATIENT
  Age: 38 Year
  Sex: Female

DRUGS (4)
  1. ZOFRAN [Suspect]
     Indication: PREGNANCY
     Dosage: 4MG AS REQUIRED
     Route: 048
  2. PEPCID [Concomitant]
  3. MULTI-VITAMIN [Concomitant]
  4. ZOFRAN [Concomitant]
     Route: 042

REACTIONS (3)
  - DRUG EXPOSURE DURING PREGNANCY [None]
  - NAUSEA [None]
  - VOMITING [None]
